FAERS Safety Report 9159760 (Version 1)
Quarter: 2013Q1

REPORT INFORMATION
  Report Type: Spontaneous
  Country: US (occurrence: None)
  Receive Date: 20130220
  Receipt Date: 20130220
  Transmission Date: 20140127
  Serious: Yes (Hospitalization)
  Sender: FDA-Public Use
  Company Number: DSU-2013-01322

PATIENT
  Age: 59 Year
  Sex: Female
  Weight: 39.92 kg

DRUGS (3)
  1. BENICAR [Suspect]
     Indication: HYPERTENSION
     Route: 048
     Dates: start: 2006, end: 201109
  2. ZOLOFT [Concomitant]
  3. LEVOTHYROXINE (LEVOTHYROXINE)(LEVOTHYROXINE) [Concomitant]

REACTIONS (3)
  - Malabsorption [None]
  - Blood pressure decreased [None]
  - Wrong technique in drug usage process [None]
